FAERS Safety Report 12407609 (Version 1)
Quarter: 2016Q2

REPORT INFORMATION
  Report Type: Not Available
  Country: None (occurrence: US)
  Receive Date: 20160526
  Receipt Date: 20160526
  Transmission Date: 20160815
  Serious: No
  Sender: FDA-Public Use
  Company Number: US-AKORN-30945

PATIENT
  Sex: Female

DRUGS (1)
  1. PHENYLEPHRINE HYDROCHLORIDE OPHTHALMIC SOLUTION, USP [Suspect]
     Active Substance: PHENYLEPHRINE HYDROCHLORIDE

REACTIONS (3)
  - Dizziness [None]
  - Wrong technique in product usage process [None]
  - Drug ineffective [None]
